FAERS Safety Report 23635988 (Version 1)
Quarter: 2024Q1

REPORT INFORMATION
  Report Type: Spontaneous
  Country: US (occurrence: US)
  Receive Date: 20240315
  Receipt Date: 20240315
  Transmission Date: 20240410
  Serious: No
  Sender: FDA-Public Use
  Company Number: US-CIPLA LTD.-2024US01093

PATIENT

DRUGS (1)
  1. LENALIDOMIDE [Suspect]
     Active Substance: LENALIDOMIDE
     Indication: Plasma cell myeloma
     Dosage: 15 MILLIGRAM, QD FOR 14 DAYS ON AND 7 DAYS OFF
     Route: 065

REACTIONS (3)
  - Intentional product use issue [Unknown]
  - Arthralgia [Unknown]
  - Diarrhoea [Unknown]
